FAERS Safety Report 14335871 (Version 1)
Quarter: 2017Q4

REPORT INFORMATION
  Report Type: Spontaneous
  Country: US (occurrence: US)
  Receive Date: 20171229
  Receipt Date: 20171229
  Transmission Date: 20180321
  Serious: Yes (Death, Hospitalization, Other)
  Sender: FDA-Public Use
  Company Number: US-APOTEX-2017AP022993

PATIENT
  Age: 24 Year
  Sex: Male

DRUGS (5)
  1. CLONAZEPAM. [Suspect]
     Active Substance: CLONAZEPAM
     Dosage: UNK
     Route: 065
  2. CLONAZEPAM. [Suspect]
     Active Substance: CLONAZEPAM
     Dosage: UNK ( INGST +UNK)
     Route: 050
  3. AMPHETAMINE [Suspect]
     Active Substance: AMPHETAMINE
     Indication: PRODUCT USED FOR UNKNOWN INDICATION
     Dosage: UNK (INGST + UNK)
     Route: 050
  4. CLONAZEPAM. [Suspect]
     Active Substance: CLONAZEPAM
     Indication: PRODUCT USED FOR UNKNOWN INDICATION
     Dosage: UNK ( INGST +UNK)
     Route: 050
  5. AMPHETAMINE [Suspect]
     Active Substance: AMPHETAMINE
     Dosage: UNK
     Route: 065

REACTIONS (1)
  - Drug abuse [Fatal]
